FAERS Safety Report 6911811-2 (Version None)
Quarter: 2010Q3

REPORT INFORMATION
  Report Type: 
  Country: None (occurrence: None)
  Receive Date: 20100806
  Receipt Date: 20070525
  Transmission Date: 20110219
  Serious: No
  Sender: FDA-Public Use
  Company Number: US-PFIZER INC-2007042801

PATIENT
  Sex: Female

DRUGS (5)
  1. MISOPROSTOL [Suspect]
     Dates: start: 20070501
  2. AMOXICILLIN [Suspect]
  3. NAPROXEN [Suspect]
  4. SCOPOLAMINE [Suspect]
  5. ALL OTHER THERAPEUTIC PRODUCTS [Suspect]

REACTIONS (5)
  - ABDOMINAL DISCOMFORT [None]
  - NAUSEA [None]
  - SURGERY [None]
  - UNEVALUABLE EVENT [None]
  - VISION BLURRED [None]
